FAERS Safety Report 7861366-3 (Version None)
Quarter: 2011Q4

REPORT INFORMATION
  Report Type: 
  Country: None (occurrence: None)
  Receive Date: 20111027
  Receipt Date: 20111027
  Transmission Date: 20120403
  Serious: Yes (Death)
  Sender: FDA-Public Use
  Company Number: DE-PFIZER INC-2011040366

PATIENT
  Age: 47 Year
  Sex: Male

DRUGS (24)
  1. FOSFOMYCIN [Concomitant]
     Dosage: 4000 MG, 3X/DAY
  2. SOLU-DECORTIN-H [Concomitant]
     Dosage: 20 MG, 1X/DAY
     Route: 042
  3. ESCITALOPRAM [Concomitant]
     Dosage: 20 MG, 1X/DAY
     Route: 048
  4. ECALTA [Suspect]
     Indication: SEPSIS
     Dosage: 100 MG, 1X/DAY
     Route: 042
     Dates: start: 20110202, end: 20110302
  5. HEPARIN [Concomitant]
     Dosage: 25000 I.U./50 ML
  6. MEROPENEM [Concomitant]
     Dosage: 1 G, 3X/DAY
  7. TOBRAMYCIN [Concomitant]
     Dosage: 300 MG/ 4 ML, TWO TIMES PER DAY
  8. ATROVENT [Concomitant]
     Dosage: 0.5 MG FIVE TIME PER DAY
  9. LORAZEPAM [Concomitant]
     Dosage: 1 MG, 1X/DAY
     Route: 048
  10. ATACAND [Concomitant]
     Dosage: 4 MG, UNK
     Route: 048
  11. ACTRAPID [Concomitant]
     Dosage: 40 I.U./40 ML, FREQUENCY UNKNOWN
  12. DIPIDOLOR [Concomitant]
     Dosage: 3 MG, 4X/DAY
     Route: 042
  13. SALBUTAMOL [Concomitant]
     Dosage: 2.5 MG FIVE TIMNES PER DAY
  14. URSO FALK [Concomitant]
     Indication: CHOLANGITIS SCLEROSING
     Dosage: 750 MG, 1X/DAY
     Route: 048
  15. AMINOSTERIL [Concomitant]
     Dosage: 500 ML 10 PER CENT SOLUTION, FREQUENCY UNKNOWN
  16. ACETYLCYSTEINE [Concomitant]
     Dosage: 300 MG, 3X/DAY
     Route: 042
  17. DAPTOMYCIN [Concomitant]
     Dosage: 500 MG, 1X/DAY
  18. ESPUMISAN [Concomitant]
     Dosage: 80 MG, 4X/DAY
  19. MIRTAZAPINE [Concomitant]
     Dosage: 15 MG, 1X/DAY
     Route: 048
  20. POTASSIUM CHLORIDE [Concomitant]
     Dosage: 40 MVAL/40 ML, FREQUENCY UNKNOWN
  21. RANITIC [Concomitant]
     Dosage: 50 MG, 3X/DAY
     Route: 042
  22. ROFLUMILAST [Concomitant]
     Dosage: 500 UG, 1X/DAY
     Route: 048
  23. PHOSPHATE-SANDOZ [Concomitant]
     Dosage: 10 ML/50
  24. PULMICORT [Concomitant]
     Dosage: 250 UG, 2X/DAY

REACTIONS (1)
  - CHOLESTASIS [None]
